FAERS Safety Report 7416065-9 (Version None)
Quarter: 2011Q2

REPORT INFORMATION
  Report Type: 
  Country: None (occurrence: None)
  Receive Date: 20110414
  Receipt Date: 20110408
  Transmission Date: 20111010
  Serious: Yes (Other)
  Sender: FDA-Public Use
  Company Number: BR-US-EMD SERONO, INC.-7053468

PATIENT
  Sex: Male

DRUGS (4)
  1. ANCORON [Concomitant]
  2. RITMONORM [Concomitant]
  3. REBIF [Suspect]
     Indication: RELAPSING-REMITTING MULTIPLE SCLEROSIS
  4. ENALAPRIL MALEATE [Concomitant]

REACTIONS (2)
  - CONJUNCTIVITIS BACTERIAL [None]
  - HORDEOLUM [None]
